FAERS Safety Report 23072728 (Version 4)
Quarter: 2024Q1

REPORT INFORMATION
  Report Type: Report from Study
  Country: JO (occurrence: JO)
  Receive Date: 20231017
  Receipt Date: 20240318
  Transmission Date: 20240410
  Serious: Yes (Hospitalization)
  Sender: FDA-Public Use
  Company Number: JO-002147023-NVSC2023JO209014

PATIENT
  Age: 65 Year
  Sex: Male
  Weight: 57 kg

DRUGS (19)
  1. DOCETAXEL [Suspect]
     Active Substance: DOCETAXEL\DOCETAXEL ANHYDROUS
     Indication: Non-small cell lung cancer
     Dosage: 96 MG
     Route: 042
     Dates: start: 20230824
  2. COMBIVENT [Concomitant]
     Active Substance: ALBUTEROL SULFATE\IPRATROPIUM BROMIDE
     Indication: Dyspnoea
     Dosage: UNK UNK, PRN,1 UNIT/1UNIT NEBULIZER
     Route: 065
     Dates: start: 20230806
  3. DEXAMETHASONE [Concomitant]
     Active Substance: DEXAMETHASONE
     Indication: Supportive care
     Dosage: UNK
     Route: 065
     Dates: start: 20230823
  4. FOLIC ACID [Concomitant]
     Active Substance: FOLIC ACID
     Indication: General physical condition
     Dosage: UNK
     Route: 065
     Dates: start: 20230823
  5. GABAPENTIN [Concomitant]
     Active Substance: GABAPENTIN
     Indication: Paraesthesia
     Dosage: 400 MG, TID
     Route: 065
     Dates: start: 20230824
  6. GABAPENTIN [Concomitant]
     Active Substance: GABAPENTIN
     Dosage: UNK, STRENGTH: 100 MG
     Route: 065
  7. GABAPENTIN [Concomitant]
     Active Substance: GABAPENTIN
     Dosage: UNK, STRENGTH: 300 MG
     Route: 065
  8. GABAPENTIN [Concomitant]
     Active Substance: GABAPENTIN
     Dosage: UNK, STRENGTH: 400 MG
     Route: 065
  9. INSULIN DETEMIR [Concomitant]
     Active Substance: INSULIN DETEMIR
     Indication: Type 2 diabetes mellitus
     Dosage: UNK UNK, QD, 10 UNITS
     Route: 065
     Dates: start: 19930101
  10. METOCLOPRAMIDE [Concomitant]
     Active Substance: METOCLOPRAMIDE
     Indication: General physical condition
     Dosage: UNK
     Route: 065
     Dates: start: 20230823
  11. NICOTINE [Concomitant]
     Active Substance: NICOTINE
     Indication: Ex-tobacco user
     Dosage: 30 MG, QD, INHALATOR 10MG/UNIT, TID
     Route: 065
     Dates: start: 20230828
  12. NICOTINE [Concomitant]
     Active Substance: NICOTINE
     Dosage: UNK, STRENGTH: 10 MG
     Route: 065
  13. NICOTINE [Concomitant]
     Active Substance: NICOTINE
     Dosage: UNK, STRENGTH: 25 MG
     Route: 065
  14. PREDNISOLONE [Concomitant]
     Active Substance: PREDNISOLONE
     Indication: Cough
     Dosage: UNK
     Route: 065
     Dates: start: 20230913
  15. PREXAL [Concomitant]
     Indication: Prophylaxis
     Dosage: 5 MG, QD
     Route: 065
     Dates: start: 20230814
  16. PULMICORT TURBUHALER [Concomitant]
     Active Substance: BUDESONIDE
     Indication: Dyspnoea
     Dosage: UNK UNK, PRN,NUBULIZER 1MG/2ML
     Route: 065
     Dates: start: 20230806
  17. REVACOD [Concomitant]
     Indication: Cough
     Dosage: UNK UNK, PRN
     Route: 065
     Dates: start: 20230913
  18. SOLOMAX [Concomitant]
     Indication: Cough
     Dosage: 45 DF, QD,15 ML, TID
     Route: 065
     Dates: start: 20230824
  19. LEVOFLOXACIN [Concomitant]
     Active Substance: LEVOFLOXACIN
     Indication: Cough
     Dosage: UNK
     Route: 065
     Dates: start: 20230913, end: 20230919

REACTIONS (2)
  - Pneumonia [Recovered/Resolved]
  - Hypotension [Recovered/Resolved]

NARRATIVE: CASE EVENT DATE: 20230925
